FAERS Safety Report 9095969 (Version 2)
Quarter: 2013Q2

REPORT INFORMATION
  Report Type: Spontaneous
  Country: GB (occurrence: GB)
  Receive Date: 20130206
  Receipt Date: 20130531
  Transmission Date: 20140414
  Serious: Yes (Other)
  Sender: FDA-Public Use
  Company Number: GB-PFIZER INC-2013046903

PATIENT
  Age: 52 Year
  Sex: Male

DRUGS (2)
  1. SUNITINIB MALATE [Suspect]
     Indication: RENAL CELL CARCINOMA
     Dosage: UNK
     Dates: start: 200703, end: 200908
  2. ATENOLOL [Concomitant]
     Indication: HYPERTENSION
     Dosage: 50 MG, UNK

REACTIONS (5)
  - Lymphadenopathy [Unknown]
  - Second primary malignancy [Unknown]
  - Adenocarcinoma [Unknown]
  - Disease progression [Unknown]
  - Renal cell carcinoma [Unknown]
